FAERS Safety Report 7946738-0 (Version None)
Quarter: 2011Q4

REPORT INFORMATION
  Report Type: 
  Country: None (occurrence: None)
  Receive Date: 20111129
  Receipt Date: 20111124
  Transmission Date: 20120403
  Serious: Yes (Life-Threatening, Hospitalization)
  Sender: FDA-Public Use
  Company Number: PHHO2011GB06848

PATIENT
  Sex: Male
  Weight: 99 kg

DRUGS (10)
  1. BUMETANIDE [Suspect]
     Indication: CARDIAC FAILURE
     Dosage: 2 MG, QD
     Dates: start: 20090409, end: 20110413
  2. WARFARIN SODIUM [Concomitant]
     Indication: SINUS ARRHYTHMIA
     Dosage: 2 MG, QD
  3. BLINDED ALISKIREN [Suspect]
     Indication: CARDIAC FAILURE
     Dosage: NO TREATMENT
  4. AMITRIPTYLINE HCL [Concomitant]
     Indication: PAIN
     Dosage: 25 MG, QD
  5. NEBIVOLOL HCL [Concomitant]
     Indication: CARDIAC FAILURE
     Dosage: 7.5 MG, QD
     Dates: start: 20070529
  6. ENALAPRIL MALEATE [Suspect]
     Indication: CARDIAC FAILURE
     Dosage: NO TREATMENT
  7. ENALAPRIL MALEATE [Suspect]
     Indication: CARDIAC FAILURE
     Dosage: 20 MG, BID
     Route: 048
     Dates: start: 20110401, end: 20110414
  8. EPLERENONE [Suspect]
     Indication: CARDIAC FAILURE
     Dosage: 50 MG, QD
     Dates: start: 20101013, end: 20110414
  9. BLINDED NO TREATMENT RECEIVED [Suspect]
     Indication: CARDIAC FAILURE
     Dosage: NO TREATMENT
  10. AMIODARONE HCL [Concomitant]
     Indication: ARRHYTHMIA
     Dosage: 200 MG, QD

REACTIONS (4)
  - LOWER RESPIRATORY TRACT INFECTION [None]
  - CARDIAC ARREST [None]
  - RENAL IMPAIRMENT [None]
  - DISEASE PROGRESSION [None]
